FAERS Safety Report 22007688 (Version 1)
Quarter: 2023Q1

REPORT INFORMATION
  Report Type: Spontaneous
  Country: US (occurrence: None)
  Receive Date: 20230218
  Receipt Date: 20230218
  Transmission Date: 20230417
  Serious: Yes (Hospitalization)
  Sender: FDA-Public Use
  Company Number: US-ROCHE-3287865

PATIENT
  Age: 74 Year
  Sex: Male

DRUGS (2)
  1. ESBRIET [Suspect]
     Active Substance: PIRFENIDONE
     Indication: Chronic respiratory failure
     Dosage: TAKE THREE TABLETS BY MOUTH THREE TIMES A DAY
     Route: 048
     Dates: start: 20210312
  2. ESBRIET [Suspect]
     Active Substance: PIRFENIDONE
     Indication: Hypoxia

REACTIONS (3)
  - Off label use [Unknown]
  - Illness [Not Recovered/Not Resolved]
  - COVID-19 [Not Recovered/Not Resolved]
